FAERS Safety Report 13334825 (Version 1)
Quarter: 2017Q1

REPORT INFORMATION
  Report Type: Report from Study
  Country: BR (occurrence: BR)
  Receive Date: 20170314
  Receipt Date: 20170314
  Transmission Date: 20170428
  Serious: Yes (Other)
  Sender: FDA-Public Use
  Company Number: PHHY2017BR038060

PATIENT
  Sex: Female
  Weight: 66 kg

DRUGS (2)
  1. ACLASTA [Suspect]
     Active Substance: ZOLEDRONIC ACID
     Indication: OSTEOPOROSIS
     Dosage: 5 MG, Q12MO (ONCE A YEAR)
     Route: 042
     Dates: start: 20160205
  2. CALCIUM [Suspect]
     Active Substance: CALCIUM
     Indication: PRODUCT USED FOR UNKNOWN INDICATION
     Route: 065

REACTIONS (7)
  - Spinal pain [Unknown]
  - Peripheral artery thrombosis [Unknown]
  - Thrombosis [Unknown]
  - Calcium deficiency [Unknown]
  - Body height decreased [Unknown]
  - Hypoaesthesia [Unknown]
  - Drug ineffective [Unknown]
